FAERS Safety Report 10696250 (Version 3)
Quarter: 2015Q1

REPORT INFORMATION
  Report Type: Spontaneous
  Country: US (occurrence: US)
  Receive Date: 20150107
  Receipt Date: 20150320
  Transmission Date: 20150721
  Serious: Yes (Other)
  Sender: FDA-Public Use
  Company Number: US-PFIZER INC-2014130001

PATIENT
  Age: 49 Year
  Sex: Female
  Weight: 95 kg

DRUGS (10)
  1. TYLENOL [Concomitant]
     Active Substance: ACETAMINOPHEN
     Indication: PAIN
     Dosage: 500 MG, AS NEEDED
  2. HYDROCODONE [Concomitant]
     Active Substance: HYDROCODONE
     Indication: PAIN
     Dosage: 7.5/325MG TABLET (1 TABLET Q. 6 HRS P.R.N.)
  3. MAG-OX [Concomitant]
     Active Substance: MAGNESIUM OXIDE
     Dosage: 400 MG, 2X/DAY
  4. ALLEGRA [Concomitant]
     Active Substance: FEXOFENADINE HYDROCHLORIDE
     Indication: HYPERSENSITIVITY
     Dosage: 180 MG, 1X/DAY (AM)
  5. NASONEX [Concomitant]
     Active Substance: MOMETASONE FUROATE
     Dosage: 29 ?G, AS NEEDED (0.25%, 1 SPRAY EA. NOSTRIL - BID)
     Route: 045
  6. SINGULAIR [Concomitant]
     Active Substance: MONTELUKAST SODIUM
     Dosage: 10 MG, 1X/DAY (PM)
  7. LYRICA [Suspect]
     Active Substance: PREGABALIN
     Indication: FIBROMYALGIA
     Dosage: 150 MG, 3X/DAY
     Route: 048
     Dates: start: 2009
  8. ZADITOR [Concomitant]
     Active Substance: KETOTIFEN FUMARATE
     Dosage: 2 DF, AS NEEDED ( 2 DROPS EA. EYE -BID)
  9. ALBUTEROL. [Concomitant]
     Active Substance: ALBUTEROL
     Dosage: 2 DF, AS NEEDED ( 2 PUFF BID)
  10. VENTOLIN [Concomitant]
     Active Substance: ALBUTEROL SULFATE
     Indication: BRONCHIAL HYPERREACTIVITY
     Dosage: 2 DF, AS NEEDED (2 PUFF EVERY HOUR)
     Route: 055

REACTIONS (5)
  - Nasopharyngitis [Unknown]
  - Epstein-Barr virus infection [Unknown]
  - Pyrexia [Unknown]
  - Sinusitis [Not Recovered/Not Resolved]
  - Upper respiratory tract infection [Not Recovered/Not Resolved]

NARRATIVE: CASE EVENT DATE: 201301
